FAERS Safety Report 6104575-6 (Version None)
Quarter: 2009Q1

REPORT INFORMATION
  Report Type: 
  Country: None (occurrence: None)
  Receive Date: 20090305
  Receipt Date: 20090223
  Transmission Date: 20090719
  Serious: Yes (Other)
  Sender: FDA-Public Use
  Company Number: GB-ABBOTT-09P-167-0559014-00

PATIENT
  Age: 65 Year
  Sex: Male

DRUGS (10)
  1. VALPROATE SODIUM [Suspect]
     Indication: GLIOBLASTOMA
     Route: 048
     Dates: start: 20080401, end: 20090201
  2. LACTULOSE [Concomitant]
     Indication: DRUG USE FOR UNKNOWN INDICATION
     Route: 065
  3. DEXAMETHASONE [Concomitant]
     Indication: DRUG USE FOR UNKNOWN INDICATION
     Route: 048
  4. CLOBAZAM [Concomitant]
     Indication: DRUG USE FOR UNKNOWN INDICATION
  5. KEPPRA [Concomitant]
     Indication: DRUG USE FOR UNKNOWN INDICATION
  6. BETNOVATE [Concomitant]
     Indication: DRUG USE FOR UNKNOWN INDICATION
  7. THYROXINE [Concomitant]
     Indication: DRUG USE FOR UNKNOWN INDICATION
  8. OMEPRAZOLE [Concomitant]
     Indication: DRUG USE FOR UNKNOWN INDICATION
  9. DERMOL [Concomitant]
     Indication: DRUG USE FOR UNKNOWN INDICATION
  10. LACRI-LUBE [Concomitant]
     Route: 047

REACTIONS (3)
  - CONVULSION [None]
  - LIVER FUNCTION TEST ABNORMAL [None]
  - RASH [None]
